FAERS Safety Report 5385691-3 (Version None)
Quarter: 2007Q3

REPORT INFORMATION
  Report Type: 
  Country: None (occurrence: None)
  Receive Date: 20070712
  Receipt Date: 20070702
  Transmission Date: 20080115
  Serious: Yes (Other)
  Sender: FDA-Public Use
  Company Number: ES-PFIZER INC-2007044797

PATIENT
  Sex: Female
  Weight: 54 kg

DRUGS (5)
  1. CHAMPIX [Suspect]
     Indication: SMOKING CESSATION THERAPY
     Route: 048
     Dates: start: 20070509, end: 20070509
  2. HALAZEPAM [Concomitant]
     Route: 048
  3. FLUOXETINE [Concomitant]
     Route: 048
  4. PAROXETINE [Concomitant]
     Route: 048
  5. CARDYL [Concomitant]

REACTIONS (1)
  - RECTAL HAEMORRHAGE [None]
